FAERS Safety Report 25167507 (Version 1)
Quarter: 2025Q2

REPORT INFORMATION
  Report Type: Spontaneous
  Country: US (occurrence: None)
  Receive Date: 20250406
  Receipt Date: 20250406
  Transmission Date: 20250717
  Serious: Yes (Death, Life-Threatening, Hospitalization, Disabling)
  Sender: FDA-CTU
  Company Number: None

PATIENT
  Age: 77 Year
  Sex: Male
  Weight: 72 kg

DRUGS (16)
  1. EVEROLIMUS [Suspect]
     Active Substance: EVEROLIMUS
     Indication: Colon cancer stage 0
     Dates: start: 202309, end: 20231018
  2. INSULIN NOS [Concomitant]
     Active Substance: INSULIN NOS
  3. SPIRONOLACTONE [Concomitant]
     Active Substance: SPIRONOLACTONE
  4. TAMSULOSIN [Concomitant]
     Active Substance: TAMSULOSIN
  5. FUROSEMIDE [Concomitant]
     Active Substance: FUROSEMIDE
  6. METOPROLOL [Concomitant]
     Active Substance: METOPROLOL
  7. SIMVASTATIN [Concomitant]
     Active Substance: SIMVASTATIN
  8. XERMELO [Concomitant]
     Active Substance: TELOTRISTAT ETHYL
  9. Torsamide [Concomitant]
  10. MULTI-VITAMIN [Suspect]
     Active Substance: .ALPHA.-TOCOPHEROL ACETATE, DL-\ASCORBIC ACID\CYANOCOBALAMIN\FLUORIDE ION\FOLIC ACID\NIACIN\PYRIDOXI
  11. TYLENOL [Concomitant]
     Active Substance: ACETAMINOPHEN
  12. ASPIRIN [Concomitant]
     Active Substance: ASPIRIN
  13. BACLOFEN [Concomitant]
     Active Substance: BACLOFEN
  14. CULTURELLE [Concomitant]
     Active Substance: LACTOBACILLUS RHAMNOSUS
  15. OMEPRAZOLE [Concomitant]
     Active Substance: OMEPRAZOLE
  16. IMODIUM [Concomitant]
     Active Substance: LOPERAMIDE HYDROCHLORIDE

REACTIONS (5)
  - Oedema peripheral [None]
  - Penile oedema [None]
  - Scrotal oedema [None]
  - Dysuria [None]
  - Swelling [None]

NARRATIVE: CASE EVENT DATE: 20230902
